FAERS Safety Report 8571064-9 (Version None)
Quarter: 2012Q3

REPORT INFORMATION
  Report Type: 
  Country: None (occurrence: None)
  Receive Date: 20120730
  Receipt Date: 20120730
  Transmission Date: 20120928
  Serious: Yes (Hospitalization)
  Sender: FDA-Public Use
  Company Number: None

PATIENT
  Age: 61 Year
  Sex: Male
  Weight: 114.5 kg

DRUGS (2)
  1. MORPHINE [Suspect]
     Indication: PAIN
     Dosage: 30 MG QID PO
     Route: 048
     Dates: start: 20120627, end: 20120727
  2. FENTANYL [Suspect]
     Indication: PAIN
     Dosage: 75MCG PER HOUR TOP
     Route: 061
     Dates: start: 20120627, end: 20120725

REACTIONS (2)
  - SOMNOLENCE [None]
  - MENTAL STATUS CHANGES [None]
